FAERS Safety Report 16523973 (Version 1)
Quarter: 2019Q3

REPORT INFORMATION
  Report Type: Spontaneous
  Country: GB (occurrence: GB)
  Receive Date: 20190703
  Receipt Date: 20190703
  Transmission Date: 20191004
  Serious: Yes (Other)
  Sender: FDA-Public Use
  Company Number: GB-SA-2019SA176744

PATIENT
  Sex: Female

DRUGS (1)
  1. LEMTRADA [Suspect]
     Active Substance: ALEMTUZUMAB
     Dosage: UNK UNK, UNK
     Route: 041
     Dates: start: 201806

REACTIONS (3)
  - Feeling abnormal [Unknown]
  - Hypothyroidism [Unknown]
  - Nuclear magnetic resonance imaging abnormal [Unknown]

NARRATIVE: CASE EVENT DATE: 2019
